FAERS Safety Report 9958020 (Version 1)
Quarter: 2014Q1

REPORT INFORMATION
  Report Type: Report from Study
  Country: US (occurrence: US)
  Receive Date: 20140304
  Receipt Date: 20140304
  Transmission Date: 20141002
  Serious: No
  Sender: FDA-Public Use
  Company Number: US-ABBVIE-13P-163-1093925-00

PATIENT
  Age: 67 Year
  Sex: Male

DRUGS (6)
  1. HUMIRA [Suspect]
     Indication: PSORIASIS
     Dates: start: 201105, end: 201210
  2. HUMIRA [Suspect]
     Dosage: LOADING DOSE
     Dates: start: 20130521, end: 20130521
  3. HUMIRA [Suspect]
     Dosage: 1 WEEK LATER
  4. HUMIRA [Suspect]
  5. AMLODIPINE [Concomitant]
     Indication: BLOOD PRESSURE
  6. LISINOPRIL [Concomitant]
     Indication: BLOOD PRESSURE

REACTIONS (2)
  - Device malfunction [Unknown]
  - Psoriasis [Not Recovered/Not Resolved]
